FAERS Safety Report 5051332-8 (Version None)
Quarter: 2006Q3

REPORT INFORMATION
  Report Type: 
  Country: None (occurrence: None)
  Receive Date: 20060710
  Receipt Date: 20060630
  Transmission Date: 20061208
  Serious: Yes (Hospitalization)
  Sender: FDA-Public Use
  Company Number: PAR_0648_2006

PATIENT
  Age: 71 Year
  Sex: Male
  Weight: 84.369 kg

DRUGS (3)
  1. MEGESTROL ACETATE [Suspect]
     Indication: PROSTATE CANCER
     Dosage: 40 MG QID PO
     Route: 048
     Dates: start: 20060213, end: 20060620
  2. LUPRON [Concomitant]
  3. PROCRIT [Concomitant]

REACTIONS (12)
  - ANGINA PECTORIS [None]
  - BENIGN PROSTATIC HYPERPLASIA [None]
  - DYSPNOEA [None]
  - EMPHYSEMA [None]
  - FATIGUE [None]
  - MYOCARDIAL INFARCTION [None]
  - PALLOR [None]
  - POLLAKIURIA [None]
  - PULMONARY EMBOLISM [None]
  - RENAL IMPAIRMENT [None]
  - SCAR [None]
  - TREMOR [None]
